FAERS Safety Report 8386526-7 (Version None)
Quarter: 2012Q2

REPORT INFORMATION
  Report Type: 
  Country: None (occurrence: None)
  Receive Date: 20120525
  Receipt Date: 20120201
  Transmission Date: 20120825
  Serious: No
  Sender: FDA-Public Use
  Company Number: US-GLAXOSMITHKLINE-A0923188A

PATIENT
  Age: 76 Year
  Sex: Male

DRUGS (1)
  1. VERAMYST [Suspect]
     Dosage: 2PUFF PER DAY
     Route: 045

REACTIONS (2)
  - EPISTAXIS [None]
  - DRUG INEFFECTIVE [None]
